FAERS Safety Report 20459949 (Version 3)
Quarter: 2022Q3

REPORT INFORMATION
  Report Type: Other
  Country: US (occurrence: None)
  Receive Date: 20220211
  Receipt Date: 20220711
  Transmission Date: 20221027
  Serious: Yes (Hospitalization, Other)
  Sender: FDA-Public Use
  Company Number: US-ROCHE-3015697

PATIENT
  Sex: Female

DRUGS (7)
  1. OCREVUS [Suspect]
     Active Substance: OCRELIZUMAB
     Indication: Relapsing-remitting multiple sclerosis
     Dosage: YES
     Route: 042
     Dates: start: 2019
  2. OYSTER SHELL CACIUM WITH VITAMIN D [Concomitant]
     Dosage: STARTED ALONG TIME AGO BEFORE OCREVUS
     Route: 048
  3. DULOXETINE [Concomitant]
     Active Substance: DULOXETINE
     Indication: Depression
     Dosage: STARTED A LONG TIME AGO BEFORE OCREVUS
     Route: 048
  4. DULOXETINE [Concomitant]
     Active Substance: DULOXETINE
     Dosage: IN THE EVENING STARTED A LONG TIME AGO BEFORE OCREVUS
     Route: 048
  5. GABAPENTIN [Concomitant]
     Active Substance: GABAPENTIN
     Dosage: STARTED A LONG TIME AGO BEFORE OCREVUS
     Route: 048
  6. MAGOX [Concomitant]
     Indication: Blood magnesium decreased
     Dosage: TAKES IN THE MORNING AND PUTS IT UNDER HER TONGUE TO DISSOLVE
     Route: 060
  7. TYLENOL [Concomitant]
     Active Substance: ACETAMINOPHEN
     Indication: Headache
     Dosage: HAS TAKEN IT ALL HER LIFE AS NEEDED
     Route: 048

REACTIONS (5)
  - COVID-19 [Recovered/Resolved]
  - Pulmonary thrombosis [Not Recovered/Not Resolved]
  - Off label use [Unknown]
  - Thrombosis [Recovered/Resolved]
  - COVID-19 pneumonia [Unknown]

NARRATIVE: CASE EVENT DATE: 20210101
